FAERS Safety Report 8157400-6 (Version None)
Quarter: 2012Q1

REPORT INFORMATION
  Report Type: 
  Country: None (occurrence: None)
  Receive Date: 20120222
  Receipt Date: 20120220
  Transmission Date: 20120608
  Serious: No
  Sender: FDA-Public Use
  Company Number: US-PFIZER INC-2012044733

PATIENT
  Sex: Female

DRUGS (3)
  1. METHENAMINE [Concomitant]
     Indication: URINARY RETENTION
     Dosage: UNK
  2. ADVIL PM [Suspect]
     Indication: INSOMNIA
  3. ADVIL PM [Suspect]
     Indication: SLEEP DISORDER
     Dosage: UNK, 1X/DAY
     Route: 048
     Dates: start: 20120218, end: 20120218

REACTIONS (1)
  - SOMNOLENCE [None]
